FAERS Safety Report 4288392-8 (Version None)
Quarter: 2004Q1

REPORT INFORMATION
  Report Type: 
  Country: None (occurrence: None)
  Receive Date: 20040209
  Receipt Date: 20030925
  Transmission Date: 20041129
  Serious: No
  Sender: FDA-Public Use
  Company Number: US-GLAXOSMITHKLINE-A0427525A

PATIENT
  Age: 45 Year
  Sex: Male

DRUGS (1)
  1. PAXIL [Suspect]
     Indication: DEPRESSION
     Dosage: 80MG PER DAY
     Route: 048

REACTIONS (4)
  - ABNORMAL DREAMS [None]
  - EATING DISORDER [None]
  - LETHARGY [None]
  - NAUSEA [None]
